FAERS Safety Report 18160188 (Version 2)
Quarter: 2023Q2

REPORT INFORMATION
  Report Type: Spontaneous
  Country: US (occurrence: US)
  Receive Date: 20200817
  Receipt Date: 20230418
  Transmission Date: 20230722
  Serious: Yes (Other)
  Sender: FDA-Public Use
  Company Number: US-GILEAD-2020-0489476

PATIENT
  Age: 48 Year
  Sex: Male
  Weight: 185 kg

DRUGS (18)
  1. ATRIPLA [Suspect]
     Active Substance: EFAVIRENZ\EMTRICITABINE\TENOFOVIR DISOPROXIL FUMARATE
     Indication: HIV infection
     Dosage: UNK
     Route: 048
     Dates: start: 2001
  2. VIREAD [Suspect]
     Active Substance: TENOFOVIR DISOPROXIL FUMARATE
     Indication: HIV infection
     Dosage: UNK
     Route: 048
     Dates: start: 2003, end: 2017
  3. VIREAD [Suspect]
     Active Substance: TENOFOVIR DISOPROXIL FUMARATE
     Dosage: UNK
     Route: 048
     Dates: start: 2003, end: 2010
  4. TRUVADA [Suspect]
     Active Substance: EMTRICITABINE\TENOFOVIR DISOPROXIL FUMARATE
     Indication: HIV infection
     Dosage: UNK
     Route: 048
     Dates: start: 2010, end: 2018
  5. BIKTARVY [Concomitant]
     Active Substance: BICTEGRAVIR SODIUM\EMTRICITABINE\TENOFOVIR ALAFENAMIDE FUMARATE
     Indication: HIV infection
     Dosage: UNK
     Dates: start: 201906
  6. COMBIVIR [Concomitant]
     Active Substance: LAMIVUDINE\ZIDOVUDINE
     Indication: HIV infection
     Dosage: UNK
  7. EPIVIR [Concomitant]
     Active Substance: LAMIVUDINE
     Indication: HIV infection
     Dosage: UNK
  8. KALETRA [Concomitant]
     Active Substance: LOPINAVIR\RITONAVIR
     Indication: HIV infection
     Dosage: UNK
     Dates: start: 200512, end: 201210
  9. PIFELTRO [Concomitant]
     Active Substance: DORAVIRINE
     Indication: HIV infection
     Dosage: UNK
  10. PREZCOBIX [Concomitant]
     Active Substance: COBICISTAT\DARUNAVIR ETHANOLATE
     Indication: HIV infection
     Dosage: UNK
     Dates: start: 201604, end: 201905
  11. PREZISTA [Concomitant]
     Active Substance: DARUNAVIR ETHANOLATE
     Indication: HIV infection
     Dosage: UNK
  12. REYATAZ [Concomitant]
     Active Substance: ATAZANAVIR SULFATE
     Indication: HIV infection
     Dosage: UNK
     Dates: start: 200809, end: 200904
  13. SUSTIVA [Concomitant]
     Active Substance: EFAVIRENZ
     Indication: HIV infection
     Dosage: UNK
  14. TRIUMEQ [Concomitant]
     Active Substance: ABACAVIR SULFATE\DOLUTEGRAVIR SODIUM\LAMIVUDINE
     Indication: HIV infection
     Dosage: UNK
     Dates: start: 201608, end: 201905
  15. VIRACEPT [Concomitant]
     Active Substance: NELFINAVIR MESYLATE
     Indication: HIV infection
     Dosage: UNK
  16. VIRAMUNE [Concomitant]
     Active Substance: NEVIRAPINE
     Indication: HIV infection
     Dosage: UNK
  17. ZERIT [Concomitant]
     Active Substance: STAVUDINE
     Indication: HIV infection
     Dosage: UNK
  18. LISINOPRIL [Concomitant]
     Active Substance: LISINOPRIL
     Indication: Hypertension
     Dosage: UNK
     Dates: start: 200912

REACTIONS (16)
  - Chronic kidney disease [Not Recovered/Not Resolved]
  - Chronic kidney disease [Not Recovered/Not Resolved]
  - Erectile dysfunction [Not Recovered/Not Resolved]
  - Bone density decreased [Unknown]
  - Emotional distress [Not Recovered/Not Resolved]
  - Anxiety [Not Recovered/Not Resolved]
  - Pain [Not Recovered/Not Resolved]
  - Pollakiuria [Not Recovered/Not Resolved]
  - Incontinence [Not Recovered/Not Resolved]
  - Back pain [Not Recovered/Not Resolved]
  - Post-traumatic stress disorder [Unknown]
  - Depression [Not Recovered/Not Resolved]
  - Restlessness [Not Recovered/Not Resolved]
  - Fatigue [Not Recovered/Not Resolved]
  - Proteinuria [Not Recovered/Not Resolved]
  - Blood creatinine increased [Not Recovered/Not Resolved]

NARRATIVE: CASE EVENT DATE: 20051201
